FAERS Safety Report 6646151-2 (Version None)
Quarter: 2010Q1

REPORT INFORMATION
  Report Type: 
  Country: None (occurrence: None)
  Receive Date: 20100323
  Receipt Date: 20100312
  Transmission Date: 20100710
  Serious: Yes (Other)
  Sender: FDA-Public Use
  Company Number: US-JNJFOC-20100104286

PATIENT
  Age: 57 Year
  Sex: Female
  Weight: 91.17 kg

DRUGS (4)
  1. TYLENOL [Suspect]
     Route: 048
  2. TYLENOL [Suspect]
     Indication: ARTHRITIS
     Route: 048
  3. HYDROCHLOROTHIAZIDE [Concomitant]
     Indication: HYPERTENSION
  4. ATENOLOL [Concomitant]
     Indication: HYPERTENSION

REACTIONS (3)
  - INCORRECT DRUG ADMINISTRATION DURATION [None]
  - ORAL FUNGAL INFECTION [None]
  - PRODUCT QUALITY ISSUE [None]
